FAERS Safety Report 16218026 (Version 1)
Quarter: 2019Q2

REPORT INFORMATION
  Report Type: Spontaneous
  Country: CA (occurrence: CA)
  Receive Date: 20190419
  Receipt Date: 20190419
  Transmission Date: 20190711
  Serious: Yes (Life-Threatening)
  Sender: FDA-Public Use
  Company Number: CA-ASTRAZENECA-2019SE58996

PATIENT
  Age: 30 Year
  Sex: Female
  Weight: 74.8 kg

DRUGS (4)
  1. PENICILLIN V [Concomitant]
     Active Substance: PENICILLIN V
  2. FORXIGA [Suspect]
     Active Substance: DAPAGLIFLOZIN
     Indication: DIABETES MELLITUS
     Dosage: 5.0 MILLIGRAM, DAILY
     Route: 048
  3. ESCITALOPRAM [Concomitant]
     Active Substance: ESCITALOPRAM OXALATE
  4. JANUMET [Concomitant]
     Active Substance: METFORMIN HYDROCHLORIDE\SITAGLIPTIN PHOSPHATE

REACTIONS (2)
  - Diabetic ketoacidosis [Recovered/Resolved]
  - Intensive care [Recovered/Resolved]
